FAERS Safety Report 15742263 (Version 2)
Quarter: 2018Q4

REPORT INFORMATION
  Report Type: Spontaneous
  Country: TW (occurrence: TW)
  Receive Date: 20181219
  Receipt Date: 20181221
  Transmission Date: 20190205
  Serious: Yes (Other)
  Sender: FDA-Public Use
  Company Number: TW-SA-2018SA344506

PATIENT
  Age: 72 Year
  Sex: Male

DRUGS (4)
  1. FLUOROURACIL. [Suspect]
     Active Substance: FLUOROURACIL
     Dosage: ON DAY 1, REPEATED EVERY 2 WEEKS, INFUSION
     Route: 042
     Dates: start: 2017
  2. OXALIPLATIN. [Suspect]
     Active Substance: OXALIPLATIN
     Indication: BLADDER ADENOCARCINOMA STAGE UNSPECIFIED
     Dosage: ON DAY 1, INJECTION
     Route: 042
     Dates: start: 2017
  3. FLUOROURACIL. [Suspect]
     Active Substance: FLUOROURACIL
     Indication: BLADDER ADENOCARCINOMA STAGE UNSPECIFIED
     Dosage: ON DAY 1, INJECTION
     Route: 042
     Dates: start: 2017
  4. FOLINIC ACID [Suspect]
     Active Substance: LEUCOVORIN
     Indication: BLADDER ADENOCARCINOMA STAGE UNSPECIFIED
     Dosage: ON DAY 1
     Route: 042
     Dates: start: 2017

REACTIONS (2)
  - Administration site extravasation [Recovered/Resolved]
  - Skin reaction [Recovered/Resolved]

NARRATIVE: CASE EVENT DATE: 2017
